FAERS Safety Report 4715950-6 (Version None)
Quarter: 2005Q3

REPORT INFORMATION
  Report Type: 
  Country: None (occurrence: None)
  Receive Date: 20050718
  Receipt Date: 20050311
  Transmission Date: 20060218
  Serious: Yes (Hospitalization, Disabling, Other)
  Sender: FDA-Public Use
  Company Number: US-MERCK-0503USA02594

PATIENT
  Age: 52 Year
  Sex: Male
  Weight: 77 kg

DRUGS (4)
  1. VIOXX [Suspect]
     Indication: EXOSTOSIS
     Route: 048
     Dates: start: 20020218, end: 20040704
  2. VIOXX [Suspect]
     Route: 048
     Dates: start: 20020218, end: 20040704
  3. VIOXX [Suspect]
     Route: 048
     Dates: start: 20020218, end: 20040704
  4. ASPIRIN [Concomitant]
     Route: 065

REACTIONS (7)
  - AORTIC VALVE INCOMPETENCE [None]
  - CARDIAC ANEURYSM [None]
  - CEREBROVASCULAR ACCIDENT [None]
  - CORONARY ARTERY DISEASE [None]
  - MITRAL VALVE INCOMPETENCE [None]
  - MYOCARDIAL INFARCTION [None]
  - NERVOUS SYSTEM DISORDER [None]
